FAERS Safety Report 25212260 (Version 1)
Quarter: 2025Q2

REPORT INFORMATION
  Report Type: Spontaneous
  Country: CY (occurrence: CY)
  Receive Date: 20250418
  Receipt Date: 20250418
  Transmission Date: 20250716
  Serious: Yes (Other)
  Sender: AMGEN
  Company Number: CY-AMGEN-CYPSP2025072097

PATIENT
  Age: 22 Year
  Sex: Male

DRUGS (7)
  1. XGEVA [Suspect]
     Active Substance: DENOSUMAB
     Indication: Prophylaxis
     Route: 065
  2. IFOSFAMIDE [Concomitant]
     Active Substance: IFOSFAMIDE
     Indication: Soft tissue sarcoma
     Dates: start: 201710, end: 201801
  3. DOXORUBICIN [Concomitant]
     Active Substance: DOXORUBICIN
     Indication: Soft tissue sarcoma
     Dates: start: 201710, end: 201801
  4. ZOLEDRONIC ACID [Concomitant]
     Active Substance: ZOLEDRONIC ACID
     Route: 065
  5. TRABECTEDIN [Concomitant]
     Active Substance: TRABECTEDIN
     Dates: start: 202103, end: 202109
  6. GEMCITABINE [Concomitant]
     Active Substance: GEMCITABINE
  7. DOCETAXEL [Concomitant]
     Active Substance: DOCETAXEL

REACTIONS (4)
  - Metastases to liver [Unknown]
  - Follicular dendritic cell sarcoma [Unknown]
  - Metastases to pleura [Unknown]
  - Lymphadenopathy [Unknown]

NARRATIVE: CASE EVENT DATE: 20230101
